FAERS Safety Report 17237529 (Version 1)
Quarter: 2020Q1

REPORT INFORMATION
  Report Type: Report from Study
  Country: DE (occurrence: DE)
  Receive Date: 20200106
  Receipt Date: 20200106
  Transmission Date: 20200409
  Serious: Yes (Other)
  Sender: FDA-Public Use
  Company Number: PHHY2018DE050092

PATIENT
  Sex: Female

DRUGS (12)
  1. ESCITALOPRAM OXALATE. [Concomitant]
     Active Substance: ESCITALOPRAM OXALATE
     Indication: DEPRESSED MOOD
     Dosage: 10 MG, QD
     Route: 065
     Dates: start: 20180226, end: 20180228
  2. GILENYA [Suspect]
     Active Substance: FINGOLIMOD HYDROCHLORIDE
     Indication: MULTIPLE SCLEROSIS
     Dosage: 0.5 MG, QD
     Route: 048
     Dates: start: 20171128
  3. PANTOZOL [Concomitant]
     Active Substance: PANTOPRAZOLE SODIUM
     Indication: GASTRITIS PROPHYLAXIS
     Dosage: 20 MG, QD
     Route: 065
     Dates: start: 20170901
  4. IRON [Concomitant]
     Active Substance: IRON
     Indication: PROPHYLAXIS
     Dosage: UNK
     Route: 065
  5. CEFPODOXIME PROXETIL. [Suspect]
     Active Substance: CEFPODOXIME PROXETIL
     Indication: INFECTION
  6. COLECALCIFEROL [Concomitant]
     Active Substance: CHOLECALCIFEROL
     Indication: VITAMIN D DEFICIENCY
     Dosage: 20000 IU, QW
     Route: 065
     Dates: start: 20171101
  7. PANTOPRAZOLE SODIUM SESQUIHYDRATE [Concomitant]
     Active Substance: PANTOPRAZOLE SODIUM
     Indication: GASTRITIS PROPHYLAXIS
     Dosage: 20 MG, QD (1-0-0)
     Route: 065
     Dates: start: 20170901
  8. VITAMIN D3 [Concomitant]
     Active Substance: CHOLECALCIFEROL
     Indication: VITAMIN D DEFICIENCY
     Dosage: 20000 IU, QW
     Route: 065
     Dates: start: 20171101
  9. VALSARTAN. [Concomitant]
     Active Substance: VALSARTAN
     Indication: HYPERTENSION
     Dosage: 160 MG, QD (1-0-0)
     Route: 065
     Dates: start: 20170901
  10. NOVALGIN [Concomitant]
     Indication: MIGRAINE
     Dosage: 500 MG, PRN (AS NEEDED,  1 ? 2 TABLETS,  UP TO A MAXIMUM OF 3 TABLETS DAILY)
     Route: 065
     Dates: start: 20180905
  11. CEFPODOXIME PROXETIL. [Suspect]
     Active Substance: CEFPODOXIME PROXETIL
     Indication: PHARYNGITIS
     Route: 065
  12. DEKRISTOL [Concomitant]
     Active Substance: CHOLECALCIFEROL
     Indication: VITAMIN D DEFICIENCY
     Dosage: 20000 IU, QW
     Route: 065
     Dates: start: 20171101

REACTIONS (17)
  - Vision blurred [Unknown]
  - Abdominal discomfort [Unknown]
  - Condition aggravated [Unknown]
  - Nausea [Unknown]
  - Aphasia [Unknown]
  - Disorientation [Unknown]
  - Infection susceptibility increased [Unknown]
  - Migraine with aura [Unknown]
  - Angioedema [Recovered/Resolved]
  - Dizziness [Unknown]
  - Acute stress disorder [Unknown]
  - Abdominal pain [Unknown]
  - Migraine [Unknown]
  - Infection [Unknown]
  - Depressed mood [Unknown]
  - Pharyngitis [Recovered/Resolved]
  - Genital herpes [Unknown]

NARRATIVE: CASE EVENT DATE: 20180201
